FAERS Safety Report 23090732 (Version 1)
Quarter: 2023Q4

REPORT INFORMATION
  Report Type: Spontaneous
  Country: CA (occurrence: CA)
  Receive Date: 20231020
  Receipt Date: 20231020
  Transmission Date: 20240109
  Serious: Yes (Other)
  Sender: FDA-Public Use
  Company Number: CA-SUN PHARMACEUTICAL INDUSTRIES LTD-2023R1-413092

PATIENT
  Age: 41 Year
  Sex: Female
  Weight: 95.6 kg

DRUGS (6)
  1. QUETIAPINE [Suspect]
     Active Substance: QUETIAPINE
     Indication: Psychiatric symptom
     Dosage: 300 MILLIGRAM, DAILY AT BEDTIME
     Route: 065
  2. BACLOFEN [Concomitant]
     Active Substance: BACLOFEN
     Indication: Psychiatric symptom
     Dosage: 55 MILLIGRAM, DAILY
     Route: 065
  3. KETAMINE [Concomitant]
     Active Substance: KETAMINE
     Indication: Psychiatric symptom
     Dosage: 250 MILLIGRAM EVERY 3 DAYS
  4. LORAZEPAM [Concomitant]
     Active Substance: LORAZEPAM
     Indication: Psychiatric symptom
     Dosage: 2 MILLIGRAM AT BEDTIME
     Route: 065
  5. SUMATRIPTAN [Concomitant]
     Active Substance: SUMATRIPTAN
     Indication: Psychiatric symptom
     Dosage: 100 MILLIGRAM, DAILY AS NEEDED
     Route: 065
  6. ZOPICLONE [Concomitant]
     Active Substance: ZOPICLONE
     Indication: Psychiatric symptom
     Dosage: 22.5 MILLIGRAM, DAILY AT BEDTIME
     Route: 065

REACTIONS (4)
  - Weight increased [Recovering/Resolving]
  - Central obesity [Recovering/Resolving]
  - Hyperglycaemia [Recovering/Resolving]
  - Metabolic function test abnormal [Recovering/Resolving]
